FAERS Safety Report 5339332-1 (Version None)
Quarter: 2007Q2

REPORT INFORMATION
  Report Type: 
  Country: None (occurrence: None)
  Receive Date: 20070322
  Receipt Date: 20061205
  Transmission Date: 20071010
  Serious: Yes (Hospitalization)
  Sender: FDA-Public Use
  Company Number: 200614441BCC

PATIENT
  Age: 75 Year
  Sex: Female
  Weight: 61.2356 kg

DRUGS (3)
  1. ALEVE [Suspect]
     Indication: ARTHRITIS
     Dosage: 220 MG, QD, ORAL
     Route: 048
     Dates: start: 20000101, end: 20060101
  2. LASIX [Concomitant]
  3. UNKNOWN HEART MEDICATION [Concomitant]

REACTIONS (2)
  - PAIN [None]
  - ULCER [None]
